FAERS Safety Report 6839178-9 (Version None)
Quarter: 2010Q2

REPORT INFORMATION
  Report Type: 
  Country: None (occurrence: None)
  Receive Date: 20100625
  Receipt Date: 20100203
  Transmission Date: 20101027
  Serious: Yes (Hospitalization)
  Sender: FDA-Public Use
  Company Number: VISP-PR-1002S-0056

PATIENT
  Age: 50 Year
  Sex: Male
  Weight: 104.3273 kg

DRUGS (3)
  1. VISIPAQUE [Suspect]
     Indication: CHEST DISCOMFORT
     Dosage: 140 ML, SINGLE DOSE, I.A.
     Route: 013
     Dates: start: 20090508, end: 20090508
  2. VISIPAQUE [Suspect]
     Indication: DYSPNOEA
     Dosage: 140 ML, SINGLE DOSE, I.A.
     Route: 013
     Dates: start: 20090508, end: 20090508
  3. ESOMEPRAZOLE MAGNESIUM (NEXIUM) [Concomitant]

REACTIONS (7)
  - AGITATION [None]
  - APHONIA [None]
  - CHEST DISCOMFORT [None]
  - EYELID FUNCTION DISORDER [None]
  - HEADACHE [None]
  - HYPOAESTHESIA [None]
  - MUSCULOSKELETAL PAIN [None]
